FAERS Safety Report 11186221 (Version 8)
Quarter: 2017Q1

REPORT INFORMATION
  Report Type: Spontaneous
  Country: CA (occurrence: CA)
  Receive Date: 20150612
  Receipt Date: 20170209
  Transmission Date: 20170428
  Serious: Yes (Other)
  Sender: FDA-Public Use
  Company Number: CA-GILEAD-2015-0157128

PATIENT
  Age: 43 Year
  Sex: Male
  Weight: 77.55 kg

DRUGS (15)
  1. CIPRALEX [Concomitant]
     Active Substance: ESCITALOPRAM OXALATE
     Indication: DEPRESSION
     Dosage: 20 MG, UNK
     Route: 048
     Dates: start: 2009
  2. 5-HTP                              /00439301/ [Concomitant]
     Dosage: 2 DF, QHS
     Route: 048
  3. SENOKOT-S [Concomitant]
     Active Substance: DOCUSATE SODIUM\SENNOSIDES
     Dosage: 2 DF, QHS
     Route: 048
  4. REACTINE                           /00884302/ [Concomitant]
     Active Substance: CETIRIZINE HYDROCHLORIDE
     Dosage: 5 MG, PRN
     Route: 048
  5. TYLENOL [Concomitant]
     Active Substance: ACETAMINOPHEN
     Dosage: UNK, PRN
  6. WELLBUTRIN [Concomitant]
     Active Substance: BUPROPION HYDROCHLORIDE
     Indication: DEPRESSION
     Dosage: 300 MG, UNK
     Route: 048
     Dates: start: 201402
  7. PROBIOTIC                          /06395501/ [Concomitant]
     Active Substance: BIFIDOBACTERIUM ANIMALIS SUBSP. LACTIS
     Dosage: 1 DF, QHS
     Route: 048
  8. ZOPICLONE [Concomitant]
     Active Substance: ZOPICLONE
     Dosage: 7.5 MG, QHS
     Route: 048
  9. TRUVADA [Suspect]
     Active Substance: EMTRICITABINE\TENOFOVIR DISOPROXIL FUMARATE
     Indication: PROPHYLAXIS AGAINST HIV INFECTION
     Dosage: 1 DF, QD
     Route: 048
     Dates: start: 201304
  10. MULTIVITAMIN                       /00097801/ [Concomitant]
     Active Substance: VITAMINS
     Dosage: 1 DF, QD
     Route: 048
  11. VITAMIN B COMPLEX [Concomitant]
     Active Substance: CYANOCOBALAMIN\DEXPANTHENOL\NIACINAMIDE\PYRIDOXINE HYDROCHLORIDE\RIBOFLAVIN 5^-PHOSPHATE SODIUM\THIAMINE HYDROCHLORIDE\VITAMIN B COMPLEX
     Dosage: UNK, QD
     Route: 048
  12. SOYA LECITHIN [Concomitant]
     Active Substance: DIETARY SUPPLEMENT
     Dosage: 2 DF, QD
     Route: 048
  13. VIMOVO [Concomitant]
     Active Substance: ESOMEPRAZOLE MAGNESIUM\NAPROXEN
     Dosage: UNK, PRN
  14. VALACYCLOVIR [Concomitant]
     Active Substance: VALACYCLOVIR HYDROCHLORIDE
     Indication: PRODUCT USED FOR UNKNOWN INDICATION
     Dosage: UNK UNKNOWN, PRN
     Route: 065
     Dates: start: 201304
  15. GLUCOSAMINE CHONDROITIN MSM [Concomitant]

REACTIONS (3)
  - HIV infection [Not Recovered/Not Resolved]
  - Multiple-drug resistance [Unknown]
  - Drug ineffective [Unknown]

NARRATIVE: CASE EVENT DATE: 20150504
